FAERS Safety Report 13587394 (Version 5)
Quarter: 2017Q2

REPORT INFORMATION
  Report Type: Spontaneous
  Country: KR (occurrence: KR)
  Receive Date: 20170526
  Receipt Date: 20170626
  Transmission Date: 20170830
  Serious: Yes (Congenital Anomaly, Other)
  Sender: FDA-Public Use
  Company Number: KR-ALLERGAN-1721479US

PATIENT
  Age: 36 Year
  Sex: Female

DRUGS (5)
  1. SUCRALFATE - BP [Suspect]
     Active Substance: SUCRALFATE
     Indication: GASTRITIS
     Dosage: 250 MG, QD
     Route: 048
  2. AMLODIPINE [Suspect]
     Active Substance: AMLODIPINE BESYLATE
     Indication: HYPERTENSION
     Dosage: 5 MG, QD
     Route: 048
  3. LORAZEPAM. [Suspect]
     Active Substance: LORAZEPAM
     Indication: ANXIETY
     Dosage: 0.5 MG, QD
     Route: 048
  4. IMIDAPRIL [Suspect]
     Active Substance: IMIDAPRIL
     Indication: HYPERTENSION
     Dosage: 5 MG, QD
     Route: 065
  5. BARNIDIPINE HYDROCHLORIDE [Suspect]
     Active Substance: BARNIDIPINE HYDROCHLORIDE
     Indication: HYPERTENSION
     Dosage: 10 MG, QD
     Route: 065

REACTIONS (2)
  - Exposure during pregnancy [Unknown]
  - Foetal death [Fatal]
